FAERS Safety Report 7523838-0 (Version None)
Quarter: 2011Q2

REPORT INFORMATION
  Report Type: 
  Country: None (occurrence: None)
  Receive Date: 20110603
  Receipt Date: 20110527
  Transmission Date: 20111010
  Serious: Yes (Death, Other)
  Sender: FDA-Public Use
  Company Number: JP-SANOFI-AVENTIS-2010SA077599

PATIENT
  Age: 72 Year
  Sex: Male
  Weight: 75 kg

DRUGS (9)
  1. ASPIRIN [Concomitant]
     Route: 048
     Dates: end: 20100329
  2. LANSOPRAZOLE [Concomitant]
     Indication: PROPHYLAXIS
     Route: 048
     Dates: start: 20091121, end: 20100329
  3. ZYLORIC ^FRESENIUS^ [Concomitant]
     Route: 048
     Dates: start: 20091208, end: 20100329
  4. PLAVIX [Suspect]
     Route: 048
     Dates: start: 20091121, end: 20100329
  5. LASIX [Concomitant]
     Route: 048
     Dates: start: 20091126, end: 20100329
  6. ALDACTONE [Concomitant]
     Route: 048
     Dates: start: 20091126, end: 20100329
  7. WARFARIN SODIUM [Concomitant]
     Indication: THROMBOSIS PROPHYLAXIS
     Route: 048
     Dates: start: 20091224, end: 20100329
  8. ENALAPRIL MALEATE [Concomitant]
     Indication: HYPERTENSION
     Route: 048
     Dates: start: 20091226, end: 20100329
  9. GLYBURIDE [Concomitant]
     Route: 048
     Dates: start: 20091226, end: 20100329

REACTIONS (2)
  - INTERSTITIAL LUNG DISEASE [None]
  - OBLITERATIVE BRONCHIOLITIS [None]
